FAERS Safety Report 5010942-4 (Version None)
Quarter: 2006Q2

REPORT INFORMATION
  Report Type: 
  Country: None (occurrence: None)
  Receive Date: 20060525
  Receipt Date: 20060519
  Transmission Date: 20061013
  Serious: Yes (Death)
  Sender: FDA-Public Use
  Company Number: FR-AVENTIS-200611880FR

PATIENT
  Age: 33 Year
  Sex: Female

DRUGS (2)
  1. KETEK [Suspect]
     Indication: PNEUMONIA
     Dates: start: 20050329, end: 20050401
  2. AUGMENTIN '125' [Concomitant]
     Indication: PNEUMONIA
     Dates: end: 20050315

REACTIONS (3)
  - CARDIO-RESPIRATORY ARREST [None]
  - MULTI-ORGAN FAILURE [None]
  - SHOCK [None]
